FAERS Safety Report 8124406-2 (Version None)
Quarter: 2012Q1

REPORT INFORMATION
  Report Type: 
  Country: None (occurrence: None)
  Receive Date: 20120209
  Receipt Date: 20120201
  Transmission Date: 20120608
  Serious: No
  Sender: FDA-Public Use
  Company Number: US-B.I. PHARMACEUTICALS,INC./RIDGEFIELD-2011-BP-28302BP

PATIENT
  Sex: Female

DRUGS (2)
  1. MULTI-VITAMIN [Concomitant]
     Indication: PROPHYLAXIS
     Route: 048
  2. PRADAXA [Suspect]
     Indication: ATRIAL FIBRILLATION
     Route: 048
     Dates: start: 20110901, end: 20120201

REACTIONS (2)
  - EPISTAXIS [None]
  - HEADACHE [None]
